FAERS Safety Report 8558794-X (Version None)
Quarter: 2012Q3

REPORT INFORMATION
  Report Type: 
  Country: None (occurrence: None)
  Receive Date: 20120801
  Receipt Date: 20120730
  Transmission Date: 20120928
  Serious: Yes (Disabling)
  Sender: FDA-Public Use
  Company Number: JP-ABBOTT-12P-087-0962122-00

PATIENT
  Sex: Male

DRUGS (5)
  1. DIDANOSINE [Concomitant]
     Dates: start: 20080219
  2. KALETRA [Suspect]
     Indication: HIV INFECTION
     Route: 048
     Dates: start: 20071220
  3. KALETRA [Suspect]
  4. DIDANOSINE [Concomitant]
     Indication: HIV INFECTION
     Dosage: DAILY DOSE 400 MG
     Route: 048
     Dates: start: 20070401, end: 20080218
  5. TENOFOVIR DISOPROXIL FUMARATE [Concomitant]
     Indication: HIV INFECTION
     Route: 048
     Dates: start: 20070401

REACTIONS (1)
  - HEPATITIS C [None]
